FAERS Safety Report 9109345 (Version 1)
Quarter: 2013Q1

REPORT INFORMATION
  Report Type: Spontaneous
  Country: US (occurrence: US)
  Receive Date: 20130222
  Receipt Date: 20130222
  Transmission Date: 20140127
  Serious: Yes (Other)
  Sender: FDA-Public Use
  Company Number: US-COVIDIEN/TYCO HEALTHCARE/MALLINCKRODT-T201300852

PATIENT
  Age: 32 Year
  Sex: Female
  Weight: 53.52 kg

DRUGS (2)
  1. EXALGO EXTENDED RELEASE [Suspect]
     Indication: PAIN
     Dosage: 12 MG, BID
     Dates: start: 20130208, end: 20130211
  2. DILAUDID [Concomitant]
     Indication: PAIN
     Dosage: 8 MG, QID

REACTIONS (20)
  - Overdose [Unknown]
  - Palpitations [Not Recovered/Not Resolved]
  - Hypoaesthesia [Unknown]
  - Mydriasis [Unknown]
  - Photophobia [Unknown]
  - Thinking abnormal [Not Recovered/Not Resolved]
  - Toothache [Unknown]
  - Panic attack [Unknown]
  - Confusional state [Unknown]
  - Heart rate increased [Not Recovered/Not Resolved]
  - Asthenia [Unknown]
  - Dysarthria [Unknown]
  - Dyspnoea [Unknown]
  - Hyperhidrosis [Unknown]
  - Decreased appetite [Not Recovered/Not Resolved]
  - Insomnia [Not Recovered/Not Resolved]
  - Tremor [Not Recovered/Not Resolved]
  - Pyrexia [Unknown]
  - Constipation [Unknown]
  - Flatulence [Unknown]
